FAERS Safety Report 7545723-0 (Version None)
Quarter: 2011Q2

REPORT INFORMATION
  Report Type: 
  Country: None (occurrence: None)
  Receive Date: 20110614
  Receipt Date: 20110607
  Transmission Date: 20111010
  Serious: Yes (Death, Hospitalization, Other)
  Sender: FDA-Public Use
  Company Number: US-AMGEN-USASP2011025471

PATIENT
  Age: 90 Year
  Sex: Female
  Weight: 63.039 kg

DRUGS (9)
  1. ELAVIL [Concomitant]
     Dosage: 10 MG, QD
  2. PREDNISONE [Concomitant]
     Dosage: 20 MG, TID
  3. CARDURA [Concomitant]
     Dosage: 1 MG, QD
  4. PROTONIX [Concomitant]
     Dosage: 40 MG, QD
  5. RITUXIMAB [Concomitant]
     Indication: IDIOPATHIC THROMBOCYTOPENIC PURPURA
     Dosage: 600 MG, QWK
     Route: 042
     Dates: start: 20101108, end: 20101201
  6. METOPROLOL [Concomitant]
     Dosage: 1000 MG, TID
     Route: 048
  7. LIPITOR [Concomitant]
     Dosage: 10 MG, QD
  8. NPLATE [Suspect]
     Indication: IDIOPATHIC THROMBOCYTOPENIC PURPURA
     Dosage: 1 A?G/KG, QWK
     Route: 058
     Dates: start: 20101118, end: 20101209
  9. NPLATE [Suspect]
     Dates: start: 20101118, end: 20101209

REACTIONS (3)
  - CEREBRAL INFARCTION [None]
  - ATRIAL FIBRILLATION [None]
  - HYPERGLYCAEMIA [None]
